FAERS Safety Report 9292623 (Version 1)
Quarter: 2013Q2

REPORT INFORMATION
  Report Type: Report from Study
  Country: US (occurrence: US)
  Receive Date: 20130516
  Receipt Date: 20130516
  Transmission Date: 20140414
  Serious: Yes (Death, Other)
  Sender: FDA-Public Use
  Company Number: PHEH2013US010645

PATIENT
  Age: 70 Year
  Sex: Female

DRUGS (1)
  1. AFINITOR [Suspect]
     Indication: CARCINOID TUMOUR PULMONARY
     Dosage: 10 MG, QD
     Route: 048
     Dates: start: 20130430

REACTIONS (2)
  - Death [Fatal]
  - Malaise [Unknown]
